FAERS Safety Report 15324052 (Version 1)
Quarter: 2018Q3

REPORT INFORMATION
  Report Type: Report from Study
  Country: None (occurrence: CA)
  Receive Date: 20180828
  Receipt Date: 20180828
  Transmission Date: 20181010
  Serious: Yes (Hospitalization)
  Sender: FDA-Public Use
  Company Number: CA-ABBVIE-18K-028-2463402-00

PATIENT
  Age: 64 Year
  Sex: Female

DRUGS (1)
  1. HUMIRA [Suspect]
     Active Substance: ADALIMUMAB
     Indication: PSORIATIC ARTHROPATHY
     Route: 058
     Dates: start: 20091212

REACTIONS (7)
  - Musculoskeletal disorder [Not Recovered/Not Resolved]
  - Hand fracture [Not Recovered/Not Resolved]
  - Fall [Recovered/Resolved]
  - Concussion [Not Recovered/Not Resolved]
  - Mobility decreased [Not Recovered/Not Resolved]
  - Exposure to extreme temperature [Recovered/Resolved]
  - Skin discolouration [Unknown]

NARRATIVE: CASE EVENT DATE: 2018
